FAERS Safety Report 7522816-5 (Version None)
Quarter: 2011Q2

REPORT INFORMATION
  Report Type: 
  Country: None (occurrence: None)
  Receive Date: 20110603
  Receipt Date: 20110531
  Transmission Date: 20111010
  Serious: Yes (Life-Threatening, Hospitalization, Disabling, Other)
  Sender: FDA-Public Use
  Company Number: US-PFIZER INC-2011044407

PATIENT
  Sex: Male

DRUGS (6)
  1. CHANTIX [Suspect]
     Indication: SMOKING CESSATION THERAPY
     Dosage: 0.5 MG AND 1 MG
     Dates: start: 20090113, end: 20090519
  2. NEURONTIN [Concomitant]
     Indication: NEUROPATHY PERIPHERAL
     Dosage: UNK
     Dates: start: 20020101
  3. NEURONTIN [Concomitant]
     Indication: INSOMNIA
  4. NEURONTIN [Concomitant]
     Indication: FIBROMYALGIA
  5. NORCO [Concomitant]
     Indication: BACK PAIN
     Dosage: UNK
     Dates: start: 20080101
  6. NORCO [Concomitant]
     Indication: PAIN

REACTIONS (18)
  - LIMB INJURY [None]
  - DEPRESSION [None]
  - ROAD TRAFFIC ACCIDENT [None]
  - AMNESIA [None]
  - INSOMNIA [None]
  - COMA [None]
  - CERVICAL VERTEBRAL FRACTURE [None]
  - COGNITIVE DISORDER [None]
  - AGGRESSION [None]
  - FACIAL BONES FRACTURE [None]
  - HEAD INJURY [None]
  - LACERATION [None]
  - BACK INJURY [None]
  - FOREIGN BODY IN EYE [None]
  - LOSS OF CONSCIOUSNESS [None]
  - NECK INJURY [None]
  - JOINT INJURY [None]
  - BRAIN INJURY [None]
